FAERS Safety Report 12157821 (Version 2)
Quarter: 2016Q2

REPORT INFORMATION
  Report Type: Report from Study
  Country: US (occurrence: US)
  Receive Date: 20160308
  Receipt Date: 20160510
  Transmission Date: 20160815
  Serious: Yes (Death, Hospitalization, Other)
  Sender: FDA-Public Use
  Company Number: US-AMGEN-USASL2016028403

PATIENT
  Age: 65 Year
  Sex: Male
  Weight: 75.8 kg

DRUGS (22)
  1. CALCIUM CARBONATE. [Concomitant]
     Active Substance: CALCIUM CARBONATE
     Dosage: 1250 MG, QD
     Route: 048
  2. FLEXERIL [Concomitant]
     Active Substance: CYCLOBENZAPRINE HYDROCHLORIDE
     Dosage: 10 MG, QMO
     Route: 048
  3. NORCO [Concomitant]
     Active Substance: ACETAMINOPHEN\HYDROCODONE BITARTRATE
     Dosage: 7.5-325 MG EVERY SIX HOURSE AS NEEDED
     Route: 048
  4. JANUVIA [Concomitant]
     Active Substance: SITAGLIPTIN PHOSPHATE
     Dosage: 100 MG, QMO
     Route: 048
  5. LANTUS [Concomitant]
     Active Substance: INSULIN GLARGINE
     Dosage: 100 UNIT/ML
     Route: 058
  6. APIDRA [Concomitant]
     Active Substance: INSULIN GLULISINE
     Dosage: 100 UNIT/ML
     Route: 058
  7. AMBIEN [Concomitant]
     Active Substance: ZOLPIDEM TARTRATE
     Dosage: 5 MG, EVRY NIGHT AS NEEDED
     Route: 048
  8. XGEVA [Suspect]
     Active Substance: DENOSUMAB
     Indication: COLON CANCER
     Dosage: 120 MG/1.7 ML, UNK
     Route: 058
     Dates: start: 20141208
  9. CETUXIMAB [Concomitant]
     Active Substance: CETUXIMAB
     Indication: COLORECTAL CANCER METASTATIC
     Dosage: UNK
  10. TRAMETINIB [Concomitant]
     Active Substance: TRAMETINIB
     Indication: METASTATIC MALIGNANT MELANOMA
     Dosage: UNK
  11. MAGNESIUM OXIDE. [Concomitant]
     Active Substance: MAGNESIUM OXIDE
     Dosage: 400 MG, UNK
     Route: 048
  12. PANITUMUMAB [Suspect]
     Active Substance: PANITUMUMAB
     Indication: COLON CANCER
     Dosage: UNK
     Route: 065
  13. VIBRAMYCIN [Concomitant]
     Active Substance: DOXYCYCLINE
     Dosage: 100 MG, Q12H
     Route: 048
  14. MORPHINE [Concomitant]
     Active Substance: MORPHINE
     Dosage: 15 MG, EVERY FOUR HOURS AS NEEDED
     Route: 048
  15. ZOFRAN [Concomitant]
     Active Substance: ONDANSETRON HYDROCHLORIDE
     Dosage: 8 MG, 8 HOURS AS NEEDED
     Route: 048
  16. AVASTIN [Concomitant]
     Active Substance: BEVACIZUMAB
     Dosage: UNK UNK, Q3WK
     Route: 042
  17. VITAMIN D3 [Concomitant]
     Active Substance: CHOLECALCIFEROL
     Dosage: 5000 UNIT, QD
     Route: 048
  18. IMODIUM [Concomitant]
     Active Substance: LOPERAMIDE HYDROCHLORIDE
     Indication: DIARRHOEA
     Dosage: 2 MG, QID
  19. NEURONTIN [Concomitant]
     Active Substance: GABAPENTIN
     Dosage: 300 MG, BID
     Route: 048
  20. XANAX [Concomitant]
     Active Substance: ALPRAZOLAM
     Indication: ANXIETY
     Dosage: 1 MG, TAKE 1 TABLET EVERY NIGHT AS NECESSARY
     Route: 048
  21. PHENERGAN [Concomitant]
     Active Substance: PROMETHAZINE HYDROCHLORIDE
     Dosage: 25 MG, Q6H
  22. FLOMAX [Concomitant]
     Active Substance: TAMSULOSIN HYDROCHLORIDE
     Dosage: 0.4 MG, 24 HR
     Route: 048

REACTIONS (10)
  - Colon cancer [Unknown]
  - Abdominal pain [Unknown]
  - Thrombocytopenia [Recovered/Resolved]
  - Phlebitis [Unknown]
  - Leukocytosis [Unknown]
  - Acute kidney injury [Unknown]
  - Death [Fatal]
  - Splenomegaly [Unknown]
  - Pyrexia [Unknown]
  - Drug ineffective [Unknown]
